FAERS Safety Report 4604550-4 (Version None)
Quarter: 2005Q2

REPORT INFORMATION
  Report Type: 
  Country: None (occurrence: None)
  Receive Date: 20050223
  Receipt Date: 20041123
  Transmission Date: 20051028
  Serious: No
  Sender: FDA-Public Use
  Company Number: PHEH2004US12635

PATIENT
  Age: 51 Year
  Sex: Female

DRUGS (2)
  1. ZELNORM [Suspect]
     Indication: IRRITABLE BOWEL SYNDROME
     Dosage: 12 MG BID, 6 MG BID
     Dates: start: 20041120, end: 20041122
  2. ZELNORM [Suspect]
     Indication: IRRITABLE BOWEL SYNDROME
     Dosage: 12 MG BID, 6 MG BID
     Dates: start: 20041123

REACTIONS (4)
  - ABDOMINAL DISTENSION [None]
  - MEDICATION ERROR [None]
  - NAUSEA [None]
  - PARAESTHESIA ORAL [None]
